APPROVED DRUG PRODUCT: TECHNETIUM TC 99M MERTIATIDE KIT
Active Ingredient: TECHNETIUM TC-99M MERTIATIDE KIT
Strength: N/A
Dosage Form/Route: POWDER;INTRAVENOUS
Application: N216820 | Product #001
Applicant: JUBILANT DRAXIMAGE INC
Approved: Jan 30, 2023 | RLD: Yes | RS: Yes | Type: RX